FAERS Safety Report 22816344 (Version 2)
Quarter: 2024Q3

REPORT INFORMATION
  Report Type: Spontaneous
  Country: FR (occurrence: FR)
  Receive Date: 20230811
  Receipt Date: 20240815
  Transmission Date: 20241017
  Serious: Yes (Death, Congenital Anomaly)
  Sender: AMGEN
  Company Number: FR-AFSSAPS-PV2023000738

PATIENT
  Age: 20 Week
  Sex: Male
  Weight: 0.456 kg

DRUGS (3)
  1. TRASTUZUMAB [Suspect]
     Active Substance: TRASTUZUMAB
     Indication: Foetal exposure during pregnancy
     Dosage: UNK
     Route: 064
  2. TUCATINIB [Suspect]
     Active Substance: TUCATINIB
     Indication: Foetal exposure during pregnancy
     Dosage: UNK
     Route: 064
  3. CAPECITABINE [Suspect]
     Active Substance: CAPECITABINE
     Indication: Foetal exposure during pregnancy
     Dosage: UNK
     Route: 064
     Dates: start: 2020

REACTIONS (8)
  - Hypertelorism [Fatal]
  - Dysmorphism [Fatal]
  - Polydactyly [Fatal]
  - Congenital pulmonary airway malformation [Fatal]
  - Ear malformation [Fatal]
  - Nose deformity [Fatal]
  - Foetal exposure during pregnancy [Unknown]
  - Foetal exposure during pregnancy [Unknown]
